FAERS Safety Report 16004212 (Version 2)
Quarter: 2019Q1

REPORT INFORMATION
  Report Type: Report from Study
  Country: UA (occurrence: UA)
  Receive Date: 20190226
  Receipt Date: 20190301
  Transmission Date: 20190418
  Serious: Yes (Other)
  Sender: FDA-Public Use
  Company Number: UA-ROCHE-2226960

PATIENT
  Age: 59 Year
  Sex: Male
  Weight: 115 kg

DRUGS (6)
  1. NAB-PACLITAXEL [Suspect]
     Active Substance: PACLITAXEL
     Indication: NON-SMALL CELL LUNG CANCER STAGE IV
     Dosage: DOSE OF LAST NAB-PACLITAXEL ADMINISTERED: 168 MG?DATE OF MOST RECENT DOSE OF NAB-PACLITAXEL PRIOR TO
     Route: 042
     Dates: start: 20161207
  2. CARBOPLATIN. [Suspect]
     Active Substance: CARBOPLATIN
     Indication: NON-SMALL CELL LUNG CANCER STAGE IV
     Dosage: DOSE OF LAST CARBOPLATIN ADMINISTERED: 900 MG?DATE OF MOST RECENT DOSE OF CARBOPLATIN PRIOR TO AE ON
     Route: 042
     Dates: start: 20161207
  3. LISINOPRIL. [Concomitant]
     Active Substance: LISINOPRIL
     Indication: HYPERTENSION
     Route: 065
     Dates: start: 2014
  4. ATEZOLIZUMAB. [Suspect]
     Active Substance: ATEZOLIZUMAB
     Indication: NON-SMALL CELL LUNG CANCER STAGE IV
     Dosage: DATE OF MOST RECENT DOSE OF ATEZOLIZUMAB PRIOR TO AE ONSET: 20/SEP/2018?DAY 1 OF EACH 21-DAY CYCLE
     Route: 042
     Dates: start: 20161207
  5. L-THYROXINE [Concomitant]
     Active Substance: LEVOTHYROXINE
     Indication: HYPOTHYROIDISM
     Route: 065
     Dates: start: 20170929
  6. SPASMALGON [Concomitant]
     Active Substance: FENPIVERINIUM BROMIDE\METAMIZOLE SODIUM\PITOFENONE HYDROCHLORIDE
     Indication: HEADACHE
     Route: 065
     Dates: start: 20181008

REACTIONS (1)
  - Type 2 diabetes mellitus [Not Recovered/Not Resolved]

NARRATIVE: CASE EVENT DATE: 20181205
